FAERS Safety Report 6442403-X (Version None)
Quarter: 2009Q4

REPORT INFORMATION
  Report Type: 
  Country: None (occurrence: None)
  Receive Date: 20091112
  Receipt Date: 20091028
  Transmission Date: 20100525
  Serious: Yes (Other)
  Sender: FDA-Public Use
  Company Number: 060003L09JPN

PATIENT
  Age: 32 Year
  Sex: Female

DRUGS (1)
  1. CLOMIPHENE CITRATE [Suspect]
     Indication: INFERTILITY
     Dosage: 50 MG, 1 IN 1 DAYS, ORAL
     Route: 048
     Dates: start: 20080401

REACTIONS (3)
  - RETINAL ARTERY OCCLUSION [None]
  - RETINAL VEIN OCCLUSION [None]
  - VISUAL FIELD DEFECT [None]
